FAERS Safety Report 5141756-2 (Version None)
Quarter: 2006Q4

REPORT INFORMATION
  Report Type: 
  Country: None (occurrence: None)
  Receive Date: 20061027
  Receipt Date: 20061009
  Transmission Date: 20070319
  Serious: Yes (Other)
  Sender: FDA-Public Use
  Company Number: GB200609004579

PATIENT
  Age: 13 Year
  Sex: Male
  Weight: 56 kg

DRUGS (3)
  1. STRATTERA [Suspect]
     Indication: ATTENTION DEFICIT/HYPERACTIVITY DISORDER
     Dosage: 25 MG, ORAL
     Route: 048
     Dates: start: 20060527, end: 20060527
  2. TEGRETOL [Concomitant]
  3. RITALIN [Concomitant]

REACTIONS (10)
  - ANAPHYLACTOID REACTION [None]
  - CONFUSIONAL STATE [None]
  - DIZZINESS [None]
  - FEELING COLD [None]
  - HYPERHIDROSIS [None]
  - LOSS OF CONSCIOUSNESS [None]
  - MALAISE [None]
  - RASH ERYTHEMATOUS [None]
  - SOMNOLENCE [None]
  - VERTIGO [None]
